FAERS Safety Report 19416190 (Version 2)
Quarter: 2021Q4

REPORT INFORMATION
  Report Type: Report from Study
  Country: BR (occurrence: BR)
  Receive Date: 20210615
  Receipt Date: 20211113
  Transmission Date: 20220303
  Serious: Yes (Hospitalization)
  Sender: FDA-Public Use
  Company Number: BR-NOVARTISPH-NVSC2021BR131692

PATIENT
  Age: 57 Year
  Sex: Male

DRUGS (5)
  1. TRILEPTAL [Suspect]
     Active Substance: OXCARBAZEPINE
     Indication: Product used for unknown indication
     Dosage: 1 DF, BID (BETWEEN 2002 AND 2004)
     Route: 065
  2. TRILEPTAL [Suspect]
     Active Substance: OXCARBAZEPINE
     Dosage: UNK UNK, BID (1 TABLET IN THE MORNING AND 2 TABLETS AT NIGHT)
     Route: 065
  3. TRILEPTAL [Suspect]
     Active Substance: OXCARBAZEPINE
     Dosage: 2 DF, QD (600 MG)
     Route: 065
     Dates: start: 2004
  4. TRILEPTAL [Suspect]
     Active Substance: OXCARBAZEPINE
     Dosage: 2 AT NIGHT, 1 IN MORNING, 15 HOURS IN AFTERNOON
     Route: 065
  5. TEGRETOL [Suspect]
     Active Substance: CARBAMAZEPINE
     Indication: Product used for unknown indication
     Dosage: 2 DF, UNKNOWN
     Route: 065

REACTIONS (8)
  - Seizure [Unknown]
  - COVID-19 [Recovered/Resolved with Sequelae]
  - Malaise [Unknown]
  - Asthenia [Unknown]
  - Musculoskeletal discomfort [Recovered/Resolved with Sequelae]
  - Arthropathy [Recovered/Resolved with Sequelae]
  - Illness [Unknown]
  - Dizziness [Unknown]

NARRATIVE: CASE EVENT DATE: 20210527
